FAERS Safety Report 4505100-3 (Version None)
Quarter: 2004Q4

REPORT INFORMATION
  Report Type: 
  Country: None (occurrence: None)
  Receive Date: 20041019
  Receipt Date: 20040924
  Transmission Date: 20050328
  Serious: No
  Sender: FDA-Public Use
  Company Number: MK200409-0183-1

PATIENT
  Age: 33 Year
  Sex: Female

DRUGS (1)
  1. NEUTROSPEC [Suspect]
     Indication: INFECTION
     Dosage: 20 MCI, ONCE
     Dates: start: 20040924, end: 20040924

REACTIONS (4)
  - CHEST PAIN [None]
  - FLUSHING [None]
  - HYPERTENSION [None]
  - NAUSEA [None]
